FAERS Safety Report 6953863-X (Version None)
Quarter: 2010Q3

REPORT INFORMATION
  Report Type: 
  Country: None (occurrence: None)
  Receive Date: 20100829
  Receipt Date: 20100624
  Transmission Date: 20110219
  Serious: No
  Sender: FDA-Public Use
  Company Number: US-ABBOTT-10P-163-0654158-00

PATIENT
  Sex: Male
  Weight: 113.5 kg

DRUGS (3)
  1. NIASPAN [Suspect]
     Indication: BLOOD CHOLESTEROL INCREASED
     Dates: start: 20100618
  2. TRAZODONE HCL [Suspect]
     Indication: INSOMNIA
  3. ARICEPT [Concomitant]
     Indication: DEMENTIA

REACTIONS (4)
  - APHASIA [None]
  - DISORIENTATION [None]
  - INSOMNIA [None]
  - SOMNOLENCE [None]
